FAERS Safety Report 18911567 (Version 1)
Quarter: 2021Q1

REPORT INFORMATION
  Report Type: Spontaneous
  Country: US (occurrence: US)
  Receive Date: 20210218
  Receipt Date: 20210218
  Transmission Date: 20210420
  Serious: No
  Sender: FDA-Public Use
  Company Number: US-INSUD PHARMA-2101US00168

PATIENT

DRUGS (1)
  1. CLOBETASOL OINTMENT [Suspect]
     Active Substance: CLOBETASOL
     Indication: FEMALE REPRODUCTIVE TRACT DISORDER
     Dosage: AS DIRECTED
     Route: 061
     Dates: start: 2006

REACTIONS (4)
  - Wound [Not Recovered/Not Resolved]
  - Product use in unapproved indication [Unknown]
  - Product package associated injury [Unknown]
  - Product container issue [Unknown]

NARRATIVE: CASE EVENT DATE: 2006
